FAERS Safety Report 16193665 (Version 2)
Quarter: 2019Q3

REPORT INFORMATION
  Report Type: Report from Study
  Country: DE (occurrence: DE)
  Receive Date: 20190413
  Receipt Date: 20190907
  Transmission Date: 20191004
  Serious: Yes (Hospitalization, Other)
  Sender: FDA-Public Use
  Company Number: DE-TEVA-2019-DE-1036042

PATIENT
  Age: 71 Year
  Sex: Male
  Weight: 86 kg

DRUGS (7)
  1. RAMIPRIL. [Concomitant]
     Active Substance: RAMIPRIL
     Indication: HYPERTENSION
     Dosage: 5 MILLIGRAM DAILY;
     Route: 048
  2. AFINITOR [Suspect]
     Active Substance: EVEROLIMUS
     Indication: BREAST CANCER
     Dosage: 10 MILLIGRAM DAILY;
     Route: 048
     Dates: start: 20140714, end: 20150312
  3. ZOLPIDEM [Concomitant]
     Active Substance: ZOLPIDEM TARTRATE
     Indication: INSOMNIA
     Dosage: UNK
     Route: 065
  4. IBUPROFEN. [Concomitant]
     Active Substance: IBUPROFEN
     Indication: OSTEOARTHRITIS
     Route: 048
  5. TAMOXIFEN [Suspect]
     Active Substance: TAMOXIFEN
     Indication: BREAST CANCER
     Dosage: UNK
     Route: 065
     Dates: start: 20140714, end: 20150217
  6. PANTOZOL [Concomitant]
     Active Substance: PANTOPRAZOLE SODIUM
     Indication: DYSPEPSIA
     Dosage: UNK
     Route: 065
  7. DICLOFENAC [Concomitant]
     Active Substance: DICLOFENAC
     Indication: OSTEOARTHRITIS
     Route: 048

REACTIONS (15)
  - Haemoglobin decreased [Unknown]
  - Pneumonitis [Recovered/Resolved]
  - White blood cell count increased [Not Recovered/Not Resolved]
  - Thrombosis [Unknown]
  - Pleural effusion [Recovered/Resolved]
  - Mucosal inflammation [Recovered/Resolved with Sequelae]
  - Fatigue [Not Recovered/Not Resolved]
  - Cough [Unknown]
  - Infection [Recovered/Resolved]
  - Platelet count increased [Not Recovered/Not Resolved]
  - Depression [Recovered/Resolved with Sequelae]
  - Platelet count decreased [Recovered/Resolved]
  - Pyrexia [Unknown]
  - Lymphoedema [Not Recovered/Not Resolved]
  - Red blood cell count decreased [Recovered/Resolved]

NARRATIVE: CASE EVENT DATE: 20140915
